FAERS Safety Report 9663784 (Version 2)
Quarter: 2013Q4

REPORT INFORMATION
  Report Type: Spontaneous
  Country: ES (occurrence: ES)
  Receive Date: 20131101
  Receipt Date: 20131101
  Transmission Date: 20140711
  Serious: Yes (Life-Threatening, Hospitalization)
  Sender: FDA-Public Use
  Company Number: ES-NOVOPROD-387674

PATIENT
  Age: 54 Year
  Sex: Male

DRUGS (6)
  1. VICTOZA [Suspect]
     Indication: TYPE 2 DIABETES MELLITUS
     Dosage: 1.8 MG, QD
     Route: 065
     Dates: start: 201303, end: 20130617
  2. ENALAPRIL [Concomitant]
     Dosage: 20 MG
     Route: 048
  3. METFORMIN [Concomitant]
  4. ATENOLOL [Concomitant]
  5. ATORVASTATIN [Concomitant]
     Dosage: 20 MG
     Route: 048
  6. FENOFIBRATE [Concomitant]
     Dosage: 145 MG
     Route: 048

REACTIONS (3)
  - Spleen disorder [Recovered/Resolved with Sequelae]
  - Pancreatitis acute [Recovered/Resolved with Sequelae]
  - Weight decreased [Unknown]
